FAERS Safety Report 10567966 (Version 1)
Quarter: 2014Q4

REPORT INFORMATION
  Report Type: Report from Study
  Country: CA (occurrence: CA)
  Receive Date: 20141106
  Receipt Date: 20141106
  Transmission Date: 20150529
  Serious: Yes (Other)
  Sender: FDA-Public Use
  Company Number: CA-JNJFOC-20141020595

PATIENT
  Age: 24 Year
  Sex: Male
  Weight: 63 kg

DRUGS (4)
  1. REMICADE [Suspect]
     Active Substance: INFLIXIMAB
     Indication: TENDONITIS
     Route: 042
     Dates: start: 20080821
  2. REMICADE [Suspect]
     Active Substance: INFLIXIMAB
     Indication: RHEUMATOID ARTHRITIS
     Route: 042
     Dates: start: 20141029
  3. REMICADE [Suspect]
     Active Substance: INFLIXIMAB
     Indication: RHEUMATOID ARTHRITIS
     Route: 042
     Dates: start: 20080821
  4. REMICADE [Suspect]
     Active Substance: INFLIXIMAB
     Indication: TENDONITIS
     Route: 042
     Dates: start: 20141029

REACTIONS (3)
  - Cardiac flutter [Recovered/Resolved]
  - Infusion related reaction [Recovered/Resolved]
  - Costochondritis [Unknown]

NARRATIVE: CASE EVENT DATE: 20141029
